FAERS Safety Report 25010052 (Version 1)
Quarter: 2025Q1

REPORT INFORMATION
  Report Type: Spontaneous
  Country: IN (occurrence: IN)
  Receive Date: 20250225
  Receipt Date: 20250225
  Transmission Date: 20250409
  Serious: Yes (Death, Other)
  Sender: ROCHE
  Company Number: IN-ROCHE-10000213481

PATIENT
  Age: 82 Year
  Sex: Female

DRUGS (1)
  1. PHESGO [Suspect]
     Active Substance: HYALURONIDASE-ZZXF\PERTUZUMAB\TRASTUZUMAB
     Indication: Gallbladder cancer
     Route: 058

REACTIONS (5)
  - Off label use [Unknown]
  - Non-cardiogenic pulmonary oedema [Unknown]
  - Vomiting [Fatal]
  - Diarrhoea [Fatal]
  - Off label use [Unknown]

NARRATIVE: CASE EVENT DATE: 20241115
